FAERS Safety Report 15066681 (Version 1)
Quarter: 2018Q2

REPORT INFORMATION
  Report Type: Spontaneous
  Country: JP (occurrence: JP)
  Receive Date: 20180626
  Receipt Date: 20180626
  Transmission Date: 20180711
  Serious: Yes (Other)
  Sender: FDA-Public Use
  Company Number: JP-009507513-1806JPN002583J

PATIENT
  Sex: Female

DRUGS (1)
  1. NU-LOTAN TABLETS 50MG [Suspect]
     Active Substance: LOSARTAN
     Dosage: UNK
     Route: 048

REACTIONS (2)
  - Haemorrhage subcutaneous [Unknown]
  - Erythema [Unknown]
